FAERS Safety Report 13235126 (Version 2)
Quarter: 2017Q1

REPORT INFORMATION
  Report Type: Report from Study
  Country: US (occurrence: US)
  Receive Date: 20170215
  Receipt Date: 20170216
  Transmission Date: 20170428
  Serious: Yes (Other)
  Sender: FDA-Public Use
  Company Number: US-JNJFOC-20170207885

PATIENT
  Sex: Female
  Weight: 99.79 kg

DRUGS (1)
  1. REMICADE [Suspect]
     Active Substance: INFLIXIMAB
     Indication: CROHN^S DISEASE
     Route: 042
     Dates: start: 2000

REACTIONS (6)
  - Product use issue [Unknown]
  - Melanoma recurrent [Recovered/Resolved]
  - Rash pruritic [Unknown]
  - Off label use [Unknown]
  - Serum sickness [Recovered/Resolved]
  - Weight decreased [Not Recovered/Not Resolved]
